FAERS Safety Report 5518983-5 (Version None)
Quarter: 2007Q4

REPORT INFORMATION
  Report Type: 
  Country: None (occurrence: None)
  Receive Date: 20071116
  Receipt Date: 20071108
  Transmission Date: 20080405
  Serious: Yes (Other)
  Sender: FDA-Public Use
  Company Number: PHNR2007AU02081

PATIENT
  Sex: Male

DRUGS (4)
  1. CLOZARIL [Suspect]
     Dosage: 12 MG - 625 MG DAILY
     Route: 048
     Dates: start: 19940415, end: 19960212
  2. CLOZARIL [Suspect]
     Dosage: 62 MG - 800 MG DAILY
     Route: 048
     Dates: start: 19960305, end: 19990203
  3. CLOZARIL [Suspect]
     Dosage: 800 MG DAILY
     Route: 048
     Dates: start: 19990303
  4. EPILIM [Concomitant]

REACTIONS (3)
  - LUNG INFECTION [None]
  - NEUTROPHIL COUNT DECREASED [None]
  - WHITE BLOOD CELL COUNT DECREASED [None]
